FAERS Safety Report 20849549 (Version 3)
Quarter: 2024Q4

REPORT INFORMATION
  Report Type: Spontaneous
  Country: CA (occurrence: CA)
  Receive Date: 20220519
  Receipt Date: 20241023
  Transmission Date: 20250114
  Serious: Yes (Death, Other)
  Sender: PFIZER
  Company Number: CA-PFIZER INC-202101777400

PATIENT
  Age: 83 Year
  Sex: Male

DRUGS (5)
  1. VYNDAQEL [Suspect]
     Active Substance: TAFAMIDIS MEGLUMINE
     Indication: Cardiac amyloidosis
     Dosage: 80 MG, 1X/DAY
     Route: 048
     Dates: start: 20190603
  2. ASPIRIN [Concomitant]
     Active Substance: ASPIRIN
     Dosage: 81 MG, DAILY
  3. CLONAZEPAM [Concomitant]
     Active Substance: CLONAZEPAM
     Dosage: UNK, AS NEEDED
  4. CRESTOR [Concomitant]
     Active Substance: ROSUVASTATIN CALCIUM
     Dosage: 10 MG AT BEDTIME
  5. TYLENOL [Concomitant]
     Active Substance: ACETAMINOPHEN
     Dosage: UNK

REACTIONS (8)
  - Death [Fatal]
  - Mitral valve incompetence [Unknown]
  - Left ventricular end-diastolic pressure increased [Unknown]
  - Pulmonary arterial pressure increased [Unknown]
  - Left ventricular hypertrophy [Unknown]
  - Left ventricular dilatation [Unknown]
  - Diastolic dysfunction [Unknown]
  - Malaise [Unknown]

NARRATIVE: CASE EVENT DATE: 20200109
